FAERS Safety Report 17538039 (Version 1)
Quarter: 2020Q1

REPORT INFORMATION
  Report Type: Spontaneous
  Country: RU (occurrence: RU)
  Receive Date: 20200313
  Receipt Date: 20200313
  Transmission Date: 20200409
  Serious: Yes (Other)
  Sender: FDA-Public Use
  Company Number: RU-ASTRAZENECA-2020SE33968

PATIENT
  Sex: Male
  Weight: 70 kg

DRUGS (4)
  1. IMFINZI [Suspect]
     Active Substance: DURVALUMAB
     Indication: NON-SMALL CELL LUNG CANCER
     Dosage: DOSE AND FREQUENCY UNKNOWN
     Route: 042
     Dates: start: 201812, end: 20200109
  2. TRAMADOL. [Concomitant]
     Active Substance: TRAMADOL
  3. GLUCOCORTICOSTEROIDS [Concomitant]
     Active Substance: UNSPECIFIED INGREDIENT
  4. DEXAMETHASONUM [Concomitant]
     Active Substance: DEXAMETHASONE

REACTIONS (2)
  - Malignant neoplasm progression [Not Recovered/Not Resolved]
  - Recurrent cancer [Not Recovered/Not Resolved]

NARRATIVE: CASE EVENT DATE: 20200109
